FAERS Safety Report 4603617-4 (Version None)
Quarter: 2005Q1

REPORT INFORMATION
  Report Type: 
  Country: None (occurrence: None)
  Receive Date: 20050310
  Receipt Date: 20050223
  Transmission Date: 20050727
  Serious: Yes (Life-Threatening, Hospitalization)
  Sender: FDA-Public Use
  Company Number: BR-BOEHRINGER INGELHEIM PHARMMACEUTICALS, INC.-2005-BP-02964BR

PATIENT
  Age: 57 Year
  Sex: Female

DRUGS (5)
  1. ATROVENT DROPS [Suspect]
     Indication: DYSPNOEA
     Route: 055
  2. ATROVENT DROPS [Suspect]
     Indication: PALLOR
  3. SORO FISIOLOGICO (SALINE SOLUTION) [Concomitant]
     Indication: DYSPNOEA
  4. BEROTEC (FORMOTEROL HYDROBROMIDE) [Concomitant]
     Indication: DYSPNOEA
     Route: 055
  5. BEROTEC (FORMOTEROL HYDROBROMIDE) [Concomitant]
     Indication: PALLOR

REACTIONS (2)
  - CARDIO-RESPIRATORY ARREST [None]
  - MEDICATION ERROR [None]
